FAERS Safety Report 7499197-9 (Version None)
Quarter: 2011Q2

REPORT INFORMATION
  Report Type: 
  Country: None (occurrence: None)
  Receive Date: 20110524
  Receipt Date: 20110518
  Transmission Date: 20111010
  Serious: Yes (Other)
  Sender: FDA-Public Use
  Company Number: BR-ABBOTT-10P-020-0687862-00

PATIENT
  Sex: Female
  Weight: 54 kg

DRUGS (7)
  1. OMEPRAZOLE [Concomitant]
     Indication: PROPHYLAXIS
     Route: 048
     Dates: start: 20050101
  2. PREDNISONE [Concomitant]
     Indication: RHEUMATOID ARTHRITIS
     Route: 048
  3. HYDROCHLOROTHIAZIDE [Suspect]
     Dosage: DOSE DIMINISHED
  4. LEFLUNOMIDE [Concomitant]
     Indication: RHEUMATOID ARTHRITIS
     Route: 048
  5. HUMIRA [Suspect]
     Indication: RHEUMATOID ARTHRITIS
     Route: 058
     Dates: start: 20080101, end: 20100901
  6. OMEPRAZOLE [Concomitant]
     Indication: GASTRIC DISORDER
  7. HYDROCHLOROTHIAZIDE [Suspect]
     Indication: HYPERTENSION
     Route: 048

REACTIONS (13)
  - BLOOD POTASSIUM DECREASED [None]
  - TREMOR [None]
  - BUNION [None]
  - JOINT SWELLING [None]
  - PAIN IN EXTREMITY [None]
  - FOOT DEFORMITY [None]
  - BACK PAIN [None]
  - PNEUMOTHORAX [None]
  - BONE PAIN [None]
  - ARTHRALGIA [None]
  - POLLAKIURIA [None]
  - SPINAL COMPRESSION FRACTURE [None]
  - FOOT FRACTURE [None]
